FAERS Safety Report 11208808 (Version 1)
Quarter: 2015Q2

REPORT INFORMATION
  Report Type: Spontaneous
  Country: GB (occurrence: GB)
  Receive Date: 20150622
  Receipt Date: 20150622
  Transmission Date: 20150821
  Serious: Yes (Hospitalization)
  Sender: FDA-Public Use
  Company Number: GB-FRESENIUS KABI-FK201502886

PATIENT
  Age: 76 Year
  Weight: 44.3 kg

DRUGS (4)
  1. EPIRUBICIN (MANUFACTURER UNKNOWN) [Suspect]
     Active Substance: EPIRUBICIN
     Indication: OESOPHAGEAL CARCINOMA
     Route: 042
     Dates: start: 20150507
  2. OMEPRAZOLE. [Concomitant]
     Active Substance: OMEPRAZOLE
     Route: 048
     Dates: start: 20150518
  3. CAPECITABINE (MANUFACTURER UNKNOWN) [Suspect]
     Active Substance: CAPECITABINE
     Indication: OESOPHAGEAL CARCINOMA
     Route: 048
     Dates: start: 20150507
  4. CISPLATIN (MANUFACTURER UNKNOWN) [Suspect]
     Active Substance: CISPLATIN
     Indication: OESOPHAGEAL CARCINOMA
     Route: 042
     Dates: start: 20150507

REACTIONS (2)
  - Condition aggravated [Unknown]
  - Blood magnesium decreased [Unknown]

NARRATIVE: CASE EVENT DATE: 20150518
